FAERS Safety Report 9519821 (Version 1)
Quarter: 2013Q1

REPORT INFORMATION
  Report Type: Spontaneous
  Country: US (occurrence: None)
  Receive Date: 20130305
  Receipt Date: 20130305
  Transmission Date: 20140127
  Serious: Yes (Hospitalization)
  Sender: FDA-Public Use
  Company Number: 163-21880-12020971

PATIENT
  Age: 66 Year
  Sex: Female

DRUGS (13)
  1. REVLIMID (LENALIDOMIDE) (25 MILLIGRAM, CAPSULES) [Suspect]
     Indication: PLASMA CELL MYELOMA
     Route: 048
     Dates: start: 201201
  2. ASPIRIN (ACETYLSALICYLIC ACID) [Concomitant]
  3. ALBUTEROL (SALBUTAMOL) [Concomitant]
  4. DORISOL (ERGOCALCIFEROL) [Concomitant]
  5. EVISTA (RALOXIFENE HYDROCHLORIDE) [Concomitant]
  6. IRON (IRON) [Concomitant]
  7. LISINOPRIL (LISINOPRIL) [Concomitant]
  8. LOVASTATIN (LOVASTATIN) [Concomitant]
  9. PROZAC (FLUOXETINE HYDROCHLORIDE) [Concomitant]
  10. UNKNOWN [Concomitant]
  11. SENNA [Concomitant]
  12. SYMBACORT (FORASEQ) [Concomitant]
  13. VITAMIN D (ERGOCALCIFEROL) [Concomitant]

REACTIONS (2)
  - Nausea [None]
  - Unevaluable event [None]
